FAERS Safety Report 25263604 (Version 1)
Quarter: 2025Q2

REPORT INFORMATION
  Report Type: Spontaneous
  Country: IN (occurrence: IN)
  Receive Date: 20250502
  Receipt Date: 20250502
  Transmission Date: 20250717
  Serious: Yes (Other)
  Sender: PFIZER
  Company Number: IN-PFIZER INC-PV202300208783

PATIENT
  Age: 70 Year
  Sex: Female
  Weight: 72.2 kg

DRUGS (3)
  1. PALBOCICLIB [Suspect]
     Active Substance: PALBOCICLIB
     Indication: Breast cancer metastatic
     Route: 048
     Dates: start: 20220720
  2. LETROZOLE [Concomitant]
     Active Substance: LETROZOLE
     Dosage: 2.5 MG, 1X/DAY
     Dates: start: 20220720
  3. CORALIUM D3 [Concomitant]
     Dosage: 1 DF, 1X/DAY (1)

REACTIONS (8)
  - Ascites [Unknown]
  - Blood pressure systolic increased [Recovering/Resolving]
  - Differential white blood cell count abnormal [Unknown]
  - Osteopenia [Unknown]
  - Haemoglobin decreased [Unknown]
  - Neutrophil count decreased [Unknown]
  - Peritoneal disorder [Unknown]
  - Inflammation [Unknown]
